FAERS Safety Report 8480712-3 (Version None)
Quarter: 2012Q2

REPORT INFORMATION
  Report Type: 
  Country: None (occurrence: None)
  Receive Date: 20120626
  Receipt Date: 20120626
  Transmission Date: 20120825
  Serious: No
  Sender: FDA-Public Use
  Company Number: None

PATIENT
  Sex: Female
  Weight: 48.5349 kg

DRUGS (1)
  1. LEVODOPA/CARBIDOPA (GENERIC) TEVA [Suspect]
     Dosage: 1 1/2 EVERY 4 HRS.
     Dates: start: 20110101

REACTIONS (1)
  - PRODUCT SUBSTITUTION ISSUE [None]
